FAERS Safety Report 6810317-9 (Version None)
Quarter: 2010Q2

REPORT INFORMATION
  Report Type: 
  Country: None (occurrence: None)
  Receive Date: 20100630
  Receipt Date: 20100618
  Transmission Date: 20101027
  Serious: Yes (Other)
  Sender: FDA-Public Use
  Company Number: PHHY2010US39878

PATIENT

DRUGS (3)
  1. FANAPT [Suspect]
     Indication: SCHIZOAFFECTIVE DISORDER
     Dosage: 6 MG, BID
     Route: 048
     Dates: start: 20100610, end: 20100615
  2. TOPAMAX [Concomitant]
     Dosage: UNK
  3. KLONOPIN [Concomitant]

REACTIONS (2)
  - DIZZINESS [None]
  - HALLUCINATION, AUDITORY [None]
